FAERS Safety Report 7393988-0 (Version None)
Quarter: 2011Q2

REPORT INFORMATION
  Report Type: 
  Country: None (occurrence: None)
  Receive Date: 20110405
  Receipt Date: 20100609
  Transmission Date: 20111010
  Serious: No
  Sender: FDA-Public Use
  Company Number: US-AMGEN-KDL417547

PATIENT
  Age: 35 Year
  Sex: Female

DRUGS (6)
  1. CYCLOPHOSPHAMIDE [Concomitant]
     Dosage: UNK UNK, Q2WK
     Dates: start: 20100601
  2. NEULASTA [Suspect]
     Indication: CHEMOTHERAPY
     Dosage: 6 MG, Q2WK
     Route: 058
     Dates: start: 20100602
  3. DOXORUBICIN HCL [Concomitant]
     Dosage: UNK UNK, Q2WK
     Dates: start: 20100601
  4. APREPITANT [Concomitant]
     Dosage: UNK UNK, PRN
     Dates: start: 20100601
  5. DEXAMETHASONE [Concomitant]
     Dosage: UNK UNK, Q2WK
     Dates: start: 20100601
  6. ONDANSETRON HYDROCHLORIDE [Concomitant]
     Dosage: UNK UNK, PRN
     Dates: start: 20100601

REACTIONS (2)
  - BACK PAIN [None]
  - BONE PAIN [None]
